FAERS Safety Report 4870364-3 (Version None)
Quarter: 2006Q1

REPORT INFORMATION
  Report Type: 
  Country: None (occurrence: None)
  Receive Date: 20060103
  Receipt Date: 20051222
  Transmission Date: 20060701
  Serious: Yes (Other)
  Sender: FDA-Public Use
  Company Number: US-JNJFOC-20051205537

PATIENT
  Sex: Male

DRUGS (16)
  1. REMICADE [Suspect]
     Route: 042
  2. REMICADE [Suspect]
     Indication: CROHN'S DISEASE
     Route: 042
  3. ATARAX [Concomitant]
  4. FLEXERIL [Concomitant]
  5. AMBIEN [Concomitant]
  6. ASACOL [Concomitant]
  7. PREDNISONE [Concomitant]
  8. PROTONIX [Concomitant]
  9. PERCOCET [Concomitant]
  10. PERCOCET [Concomitant]
  11. IMODIUM [Concomitant]
  12. VICODIN [Concomitant]
  13. VICODIN [Concomitant]
  14. CELEBREX [Concomitant]
  15. COUMADIN [Concomitant]
  16. AVANDAMENT [Concomitant]

REACTIONS (1)
  - ANAPLASTIC LARGE CELL LYMPHOMA T- AND NULL-CELL TYPES [None]
